FAERS Safety Report 8040764-1 (Version None)
Quarter: 2012Q1

REPORT INFORMATION
  Report Type: 
  Country: None (occurrence: None)
  Receive Date: 20120111
  Receipt Date: 20111230
  Transmission Date: 20120608
  Serious: No
  Sender: FDA-Public Use
  Company Number: US-AMGEN-USASP2011052753

PATIENT
  Age: 37 Year
  Sex: Female
  Weight: 49.433 kg

DRUGS (2)
  1. ENBREL [Suspect]
     Indication: PSORIATIC ARTHROPATHY
  2. ENBREL [Suspect]
     Indication: PSORIASIS
     Dosage: 50 MG, QWK
     Route: 058
     Dates: start: 20110413

REACTIONS (6)
  - INSOMNIA [None]
  - INJECTION SITE PAIN [None]
  - HEADACHE [None]
  - INJECTION SITE PRURITUS [None]
  - INCORRECT DOSE ADMINISTERED [None]
  - INJECTION SITE ERYTHEMA [None]
